FAERS Safety Report 5299551-X (Version None)
Quarter: 2007Q2

REPORT INFORMATION
  Report Type: 
  Country: None (occurrence: None)
  Receive Date: 20070410
  Receipt Date: 20070403
  Transmission Date: 20071010
  Serious: No
  Sender: FDA-Public Use
  Company Number: A0644103A

PATIENT
  Age: 31 Year
  Sex: Female

DRUGS (2)
  1. LAMICTAL [Suspect]
     Indication: BIPOLAR DISORDER
     Dosage: 25 MG/PER DAY/ORAL
     Route: 048
     Dates: start: 20070101, end: 20070101
  2. LEXAPRO [Concomitant]

REACTIONS (2)
  - BLISTER [None]
  - RASH [None]
